FAERS Safety Report 4797997-7 (Version None)
Quarter: 2005Q3

REPORT INFORMATION
  Report Type: 
  Country: None (occurrence: None)
  Receive Date: 20050929
  Receipt Date: 20050822
  Transmission Date: 20060218
  Serious: No
  Sender: FDA-Public Use
  Company Number: 05P-163-0308839

PATIENT
  Age: 74 Year
  Sex: Female
  Weight: 61.6892 kg

DRUGS (10)
  1. HUMIRA [Suspect]
     Indication: RHEUMATOID ARTHRITIS
     Dosage: 40 MG, 1 IN 2 WK, SUBCUTANEOUS; SEE IMAGE
     Route: 058
     Dates: start: 20041201, end: 20050501
  2. HUMIRA [Suspect]
     Indication: RHEUMATOID ARTHRITIS
     Dosage: 40 MG, 1 IN 2 WK, SUBCUTANEOUS; SEE IMAGE
     Route: 058
     Dates: start: 20050721, end: 20050809
  3. METHOTREXATE [Concomitant]
  4. FOLIC ACID [Concomitant]
  5. ALENDRONATE SODIUM [Concomitant]
  6. KLORATON K [Concomitant]
  7. TRIAMPTERINE [Concomitant]
  8. BISOPROLOL [Concomitant]
  9. ATENOLOL [Concomitant]
  10. BENICAR [Concomitant]

REACTIONS (5)
  - LEUKOCYTOCLASTIC VASCULITIS [None]
  - PHARYNGEAL OEDEMA [None]
  - PRURITUS [None]
  - SWELLING FACE [None]
  - SWOLLEN TONGUE [None]
